FAERS Safety Report 6645797-5 (Version None)
Quarter: 2010Q1

REPORT INFORMATION
  Report Type: 
  Country: None (occurrence: None)
  Receive Date: 20100323
  Receipt Date: 20100315
  Transmission Date: 20100710
  Serious: Yes (Hospitalization)
  Sender: FDA-Public Use
  Company Number: CO-ELI_LILLY_AND_COMPANY-CO201002003421

PATIENT
  Sex: Female

DRUGS (4)
  1. HUMULIN N [Suspect]
     Indication: TYPE 2 DIABETES MELLITUS
     Dosage: 26 IU, EACH MORNING
     Route: 058
     Dates: start: 20040101
  2. HUMULIN N [Suspect]
     Dosage: 22 IU, EACH EVENING
     Route: 058
     Dates: start: 20040101
  3. METFORMIN HCL [Concomitant]
     Dosage: UNK, UNKNOWN
     Route: 065
  4. OXYGEN [Concomitant]
     Dosage: UNK, UNKNOWN
     Route: 065

REACTIONS (5)
  - EMPHYSEMA [None]
  - FLUID RETENTION [None]
  - HYPERGLYCAEMIA [None]
  - RESPIRATORY DISORDER [None]
  - WEIGHT INCREASED [None]
